FAERS Safety Report 6724090-6 (Version None)
Quarter: 2010Q2

REPORT INFORMATION
  Report Type: 
  Country: None (occurrence: None)
  Receive Date: 20100513
  Receipt Date: 20100507
  Transmission Date: 20101027
  Serious: Yes (Hospitalization)
  Sender: FDA-Public Use
  Company Number: US-ROCHE-699572

PATIENT
  Sex: Male
  Weight: 74.3 kg

DRUGS (29)
  1. TOCILIZUMAB [Suspect]
     Indication: RHEUMATOID ARTHRITIS
     Dosage: FORM: INFUSION, DATE OF LAST DOSE PRIOR TO SAE: 04 FEBRUARY 2010.
     Route: 042
     Dates: start: 20050921, end: 20100205
  2. TOCILIZUMAB [Suspect]
     Dosage: ENROLLED IN STUDY WA18062 IN PAST, FORM: INFUSION
     Route: 042
  3. METHOTREXATE [Suspect]
     Indication: DRUG USE FOR UNKNOWN INDICATION
     Dosage: AS MUCH NEEDED.
     Route: 065
     Dates: start: 20050727
  4. METHOTREXATE [Suspect]
     Dosage: TOTAL DAILY DOSE: 15 MG PER WEEK
     Route: 065
     Dates: start: 20080109, end: 20100223
  5. PREDNISONE TAB [Suspect]
     Indication: DRUG USE FOR UNKNOWN INDICATION
     Route: 065
     Dates: start: 20001102, end: 20100223
  6. PREDNISONE TAB [Suspect]
     Route: 065
     Dates: start: 20100224, end: 20100308
  7. PREDNISONE TAB [Suspect]
     Route: 065
     Dates: start: 20100314, end: 20100316
  8. PREDNISONE TAB [Suspect]
     Route: 065
     Dates: start: 20100317, end: 20100319
  9. PREDNISONE TAB [Suspect]
     Route: 065
     Dates: start: 20100320, end: 20100322
  10. PREDNISONE TAB [Suspect]
     Route: 065
     Dates: start: 20100323, end: 20100325
  11. PREDNISONE TAB [Suspect]
     Route: 065
     Dates: start: 20100326
  12. FOLIC ACID [Concomitant]
     Dates: start: 20050726
  13. PLAVIX [Concomitant]
     Dates: start: 20031022
  14. FOSAMAX [Concomitant]
     Dosage: TOTAL DAILY DOSE: 70 MG PER WEEK
     Dates: start: 20030731, end: 20100223
  15. HYDROCHLOROTHIAZIDE [Concomitant]
     Dates: start: 20031216
  16. TOPROL-XL [Concomitant]
     Dates: start: 20031022
  17. ISOSORBIDE MONONITRATE [Concomitant]
     Dates: start: 20031119
  18. CALCIUM/VITAMIN D [Concomitant]
     Dosage: 600MG/200 IU
     Dates: start: 20040422
  19. LEVOXYL [Concomitant]
     Dates: start: 20051123
  20. LOVASTATIN [Concomitant]
     Dates: start: 20060210
  21. OMEPRAZOLE [Concomitant]
     Dates: start: 20060616
  22. ASPIRIN [Concomitant]
     Dates: start: 20060819, end: 20100309
  23. ASPIRIN [Concomitant]
     Dates: start: 20100408
  24. METFORMIN HYDROCHLORIDE [Concomitant]
     Dosage: DRUG NAME REPORTED AS METFORMIN HC.
     Dates: start: 20070423
  25. ALBUTEROL [Concomitant]
     Dates: start: 20030920
  26. SIMVASTATIN [Concomitant]
     Dates: start: 20080129
  27. K-DUR [Concomitant]
     Dates: start: 20090528
  28. GLIPIZIDE [Concomitant]
     Dates: start: 20070114, end: 20100331
  29. SWINE FLU VACCINE [Concomitant]
     Dosage: DRUG REPORTED AS: H1N1 INFLUENZA VACCINE
     Dates: start: 20100121, end: 20100121

REACTIONS (2)
  - ILEUS PARALYTIC [None]
  - PANCREATIC NEOPLASM [None]
